FAERS Safety Report 6773098-3 (Version None)
Quarter: 2010Q2

REPORT INFORMATION
  Report Type: 
  Country: None (occurrence: None)
  Receive Date: 20100616
  Receipt Date: 20100604
  Transmission Date: 20101027
  Serious: Yes (Other)
  Sender: FDA-Public Use
  Company Number: FR-PFIZER INC-2010070343

PATIENT
  Age: 11 Year
  Sex: Female

DRUGS (5)
  1. REVATIO [Suspect]
     Indication: PULMONARY HYPERTENSION
     Dosage: 20 MG, 3X/DAY
  2. REVATIO [Suspect]
     Dosage: 10 MG, 3X/DAY
  3. TRACLEER [Concomitant]
     Indication: PULMONARY HYPERTENSION
     Dosage: UNK
  4. FLOLAN [Concomitant]
     Indication: PULMONARY HYPERTENSION
  5. REMODULIN [Concomitant]

REACTIONS (1)
  - PARAESTHESIA [None]
